FAERS Safety Report 6488028-1 (Version None)
Quarter: 2009Q4

REPORT INFORMATION
  Report Type: 
  Country: None (occurrence: None)
  Receive Date: 20091210
  Receipt Date: 20091201
  Transmission Date: 20100525
  Serious: Yes (Hospitalization, Other)
  Sender: FDA-Public Use
  Company Number: PHHY2009CA52670

PATIENT
  Sex: Female

DRUGS (1)
  1. DIOVAN HCT [Suspect]
     Indication: BLOOD PRESSURE
     Dosage: 1 TABLET DAILY
     Route: 048
     Dates: start: 20050101, end: 20091119

REACTIONS (7)
  - BLOOD ELECTROLYTES DECREASED [None]
  - DECREASED APPETITE [None]
  - FATIGUE [None]
  - HYPERTENSION [None]
  - HYPONATRAEMIA [None]
  - LETHARGY [None]
  - NAUSEA [None]
